FAERS Safety Report 9868483 (Version 2)
Quarter: 2014Q1

REPORT INFORMATION
  Report Type: Spontaneous
  Country: IT (occurrence: IT)
  Receive Date: 20140204
  Receipt Date: 20140211
  Transmission Date: 20141002
  Serious: Yes (Hospitalization)
  Sender: FDA-Public Use
  Company Number: IT-PFIZER INC-2014031624

PATIENT
  Age: 83 Year
  Sex: Female

DRUGS (9)
  1. HALCION [Suspect]
     Indication: INSOMNIA
     Dosage: 125 UG, TOTAL
     Route: 048
     Dates: start: 20140110, end: 20140110
  2. CITICOLINE [Concomitant]
  3. FLUNARIZINE DIHYDROCHLORIDE [Concomitant]
  4. CLEXANE [Concomitant]
     Dosage: 1 DF, UNK
     Route: 058
  5. SINEMET [Concomitant]
     Dosage: 1.5 DF, UNK
     Route: 048
  6. LASIX [Concomitant]
     Dosage: 0.5 DF, UNK
  7. LANOXIN [Concomitant]
  8. PANTORC [Concomitant]
  9. PRISMA [Concomitant]

REACTIONS (1)
  - Sopor [Recovered/Resolved]
